FAERS Safety Report 10169053 (Version 1)
Quarter: 2014Q2

REPORT INFORMATION
  Report Type: Spontaneous
  Country: GB (occurrence: None)
  Receive Date: 20140509
  Receipt Date: 20140509
  Transmission Date: 20141212
  Serious: Yes (Hospitalization, Disabling, Other)
  Sender: FDA-Public Use
  Company Number: AUR-APL-2014-05372

PATIENT
  Age: 60 Year
  Sex: Male
  Weight: 101.6 kg

DRUGS (2)
  1. NAPROXEN(NAPROXEN) [Suspect]
     Indication: MUSCULOSKELETAL PAIN
     Route: 048
     Dates: start: 201403
  2. CO-CODAMOL(PANADEMINE CO) [Concomitant]

REACTIONS (4)
  - Presyncope [None]
  - Pain [None]
  - Gastrointestinal haemorrhage [None]
  - Gastrointestinal ulcer [None]
